FAERS Safety Report 12499482 (Version 2)
Quarter: 2016Q3

REPORT INFORMATION
  Report Type: Spontaneous
  Country: ES (occurrence: ES)
  Receive Date: 20160627
  Receipt Date: 20160701
  Transmission Date: 20161109
  Serious: Yes (Other)
  Sender: FDA-Public Use
  Company Number: ES-ABBVIE-16K-144-1640051-00

PATIENT
  Age: 7 Year
  Sex: Male
  Weight: 30 kg

DRUGS (4)
  1. METHOTREXATE. [Suspect]
     Active Substance: METHOTREXATE
     Indication: JUVENILE PSORIATIC ARTHRITIS
     Route: 058
     Dates: start: 201310
  2. ENBREL [Concomitant]
     Active Substance: ETANERCEPT
     Indication: JUVENILE PSORIATIC ARTHRITIS
     Dates: start: 2016
  3. HUMIRA [Suspect]
     Active Substance: ADALIMUMAB
     Indication: DACTYLITIS
     Route: 058
  4. HUMIRA [Suspect]
     Active Substance: ADALIMUMAB
     Indication: JUVENILE PSORIATIC ARTHRITIS
     Route: 058
     Dates: start: 20141020, end: 20150408

REACTIONS (6)
  - Psychomotor hyperactivity [Recovered/Resolved]
  - Infection [Recovered/Resolved]
  - Arthritis [Unknown]
  - Arthritis [Unknown]
  - Uveitis [Recovering/Resolving]
  - Intentional self-injury [Recovered/Resolved]

NARRATIVE: CASE EVENT DATE: 20141124
